FAERS Safety Report 5688583-5 (Version None)
Quarter: 2008Q1

REPORT INFORMATION
  Report Type: 
  Country: None (occurrence: None)
  Receive Date: 20080331
  Receipt Date: 20080320
  Transmission Date: 20080703
  Serious: Yes (Other)
  Sender: FDA-Public Use
  Company Number: GB-JNJFOC-20080305217

PATIENT
  Sex: Male
  Weight: 100 kg

DRUGS (10)
  1. REMICADE [Suspect]
     Indication: RHEUMATOID ARTHRITIS
     Route: 042
  2. SULFASALAZINE [Concomitant]
  3. PREDNISOLONE [Concomitant]
  4. AMLODIPINE [Concomitant]
  5. CODEINE SUL TAB [Concomitant]
  6. DICLOFENAC [Concomitant]
  7. FOLIC ACID [Concomitant]
  8. FOSINOPRIL SODIUM [Concomitant]
  9. INHALERS [Concomitant]
  10. ACETAMINOPHEN [Concomitant]

REACTIONS (1)
  - BASAL CELL CARCINOMA [None]
